FAERS Safety Report 5306069-4 (Version None)
Quarter: 2007Q2

REPORT INFORMATION
  Report Type: 
  Country: None (occurrence: None)
  Receive Date: 20070424
  Receipt Date: 20061004
  Transmission Date: 20071010
  Serious: No
  Sender: FDA-Public Use
  Company Number: US-BRISTOL-MYERS SQUIBB COMPANY-13502067

PATIENT
  Age: 29 Year
  Sex: Male
  Weight: 132 kg

DRUGS (4)
  1. HYDREA [Suspect]
     Indication: THROMBOCYTOPENIA
     Route: 048
     Dates: start: 20050601, end: 20060901
  2. ASPIRIN [Concomitant]
     Route: 048
  3. PEPCID [Concomitant]
     Indication: GASTRITIS
  4. PREVACID [Concomitant]
     Indication: GASTRITIS

REACTIONS (1)
  - GASTRITIS [None]
